FAERS Safety Report 4277447-X (Version None)
Quarter: 2004Q1

REPORT INFORMATION
  Report Type: 
  Country: None (occurrence: None)
  Receive Date: 20040122
  Receipt Date: 20020619
  Transmission Date: 20041129
  Serious: Yes (Hospitalization)
  Sender: FDA-Public Use
  Company Number: ES-ROCHE-316049

PATIENT
  Age: 58 Year
  Sex: Male
  Weight: 65 kg

DRUGS (12)
  1. DACLIZUMAB [Suspect]
     Route: 042
     Dates: start: 20020417, end: 20020417
  2. DACLIZUMAB [Suspect]
     Dosage: X 4 DOSES
     Route: 042
     Dates: start: 20020430, end: 20020612
  3. MYCOPHENOLATE MOFETIL [Suspect]
     Route: 048
     Dates: start: 20020612
  4. CYCLOSPORINE [Concomitant]
     Route: 065
  5. PREDNISONE [Concomitant]
     Route: 065
     Dates: start: 20020612
  6. RANITIDINE [Concomitant]
     Dates: start: 20020419
  7. AMLODIPINE BESYLATE [Concomitant]
     Dates: start: 20020419
  8. LORAZEPAM [Concomitant]
     Dates: start: 20020422
  9. COTRIM [Concomitant]
     Dosage: 80/400 MG
     Dates: start: 20020424
  10. INSULIN [Concomitant]
     Dates: start: 20020529
  11. SEROPRAM [Concomitant]
     Dates: start: 20020502, end: 20020617
  12. BISOPROLOL FUMARATE [Concomitant]
     Dates: start: 20020424, end: 20020617

REACTIONS (1)
  - CYTOMEGALOVIRUS INFECTION [None]
